FAERS Safety Report 9663932 (Version 1)
Quarter: 2013Q4

REPORT INFORMATION
  Report Type: Spontaneous
  Country: US (occurrence: None)
  Receive Date: 20131030
  Receipt Date: 20131030
  Transmission Date: 20140711
  Serious: Yes (Disabling)
  Sender: FDA-Public Use
  Company Number: None

PATIENT
  Age: 47 Year
  Sex: Male
  Weight: 120.2 kg

DRUGS (11)
  1. TOPROL XL [Suspect]
     Indication: HYPERTENSION
     Route: 048
     Dates: start: 199403, end: 19950331
  2. GLYBURIDE [Concomitant]
  3. METFORMIN [Concomitant]
  4. ENALAPRIL [Concomitant]
  5. CHLORTHALIDONE [Concomitant]
  6. CRESTOR [Concomitant]
  7. DILTIAZEM [Concomitant]
  8. ASPIRIN [Concomitant]
  9. MAGNESIUM [Concomitant]
  10. 1-A-DAY MEN^S FORMULA VITAMINS [Concomitant]
  11. ZYRTEC [Concomitant]

REACTIONS (5)
  - Vision blurred [None]
  - Thirst [None]
  - Pollakiuria [None]
  - Weight decreased [None]
  - Diabetes mellitus [None]
